FAERS Safety Report 17481923 (Version 1)
Quarter: 2020Q1

REPORT INFORMATION
  Report Type: Spontaneous
  Country: CN (occurrence: CN)
  Receive Date: 20200302
  Receipt Date: 20200302
  Transmission Date: 20200409
  Serious: Yes (Hospitalization)
  Sender: FDA-Public Use
  Company Number: CN-BAXTER-2020BAX004398

PATIENT
  Age: 10 Year
  Sex: Male
  Weight: 24 kg

DRUGS (16)
  1. ENDOXAN [Suspect]
     Active Substance: CYCLOPHOSPHAMIDE
     Indication: NEUROBLASTOMA
  2. MESNA. [Suspect]
     Active Substance: MESNA
     Indication: PROPHYLAXIS
     Route: 042
     Dates: start: 20190205, end: 20200209
  3. 0.9% SODIUM CHLORIDE INJECTION [Suspect]
     Active Substance: SODIUM CHLORIDE
     Dosage: ONDANSETRON HYDROCHLORIDE 4.4 MG + 0.9% SODIUM CHLORIDE (NS)
     Route: 041
     Dates: start: 20200205, end: 20200209
  4. HEMEIXIN [Suspect]
     Active Substance: TOPOTECAN HYDROCHLORIDE
     Indication: REFRACTORY CANCER
     Dosage: HEMEIXIN + 0.9% SODIUM CHLORIDE (NS) 28 ML (DAY 1 TO DAY 5)
     Route: 041
     Dates: start: 20200205, end: 20200209
  5. HEMEIXIN [Suspect]
     Active Substance: TOPOTECAN HYDROCHLORIDE
     Indication: METASTASIS
     Dosage: DOSE RE-INTRODUCED, HEMEIXIN + 0.9% SODIUM CHLORIDE (NS)
     Route: 041
     Dates: start: 202002
  6. MESNA. [Suspect]
     Active Substance: MESNA
     Dosage: DOSE RE-INTRODUCED
     Route: 042
     Dates: start: 202002
  7. ENDOXAN [Suspect]
     Active Substance: CYCLOPHOSPHAMIDE
     Indication: METASTASIS
     Dosage: DOSE RE-INTRODUCED, ENDOXAN + 0.9% SODIUM CHLORIDE (NS)
     Route: 041
     Dates: start: 202002
  8. 0.9% SODIUM CHLORIDE INJECTION [Suspect]
     Active Substance: SODIUM CHLORIDE
     Dosage: DOSE RE-INTRODUCED, ENDOXAN + 0.9% SODIUM CHLORIDE (NS)
     Route: 041
     Dates: start: 202002
  9. ENDOXAN [Suspect]
     Active Substance: CYCLOPHOSPHAMIDE
     Indication: REFRACTORY CANCER
     Dosage: ENDOXAN + 0.9% SODIUM CHLORIDE (NS) 53 ML (DAY 1 TO DAY 5)
     Route: 041
     Dates: start: 20200205, end: 20200209
  10. 0.9% SODIUM CHLORIDE INJECTION [Suspect]
     Active Substance: SODIUM CHLORIDE
     Indication: MEDICATION DILUTION
     Dosage: ENDOXAN 220 MG+ 0.9% SODIUM CHLORIDE (NS) (DAY 1 TO DAY 5)
     Route: 041
     Dates: start: 20200205, end: 20200209
  11. 0.9% SODIUM CHLORIDE INJECTION [Suspect]
     Active Substance: SODIUM CHLORIDE
     Dosage: HEMEIXIN 0.70 MG+ 0.9% SODIUM CHLORIDE (NS) (DAY 1 TO DAY 5)
     Route: 041
     Dates: start: 20200205, end: 20200209
  12. 0.9% SODIUM CHLORIDE INJECTION [Suspect]
     Active Substance: SODIUM CHLORIDE
     Dosage: DOSE RE-INTRODUCED, HEMEIXIN + 0.9% SODIUM CHLORIDE (NS)
     Route: 041
     Dates: start: 202002
  13. 0.9% SODIUM CHLORIDE INJECTION [Suspect]
     Active Substance: SODIUM CHLORIDE
     Dosage: DOSE RE-INTRODUCED, ONDANSETRON HYDROCHLORIDE+ 0.9% SODIUM CHLORIDE (NS)
     Route: 041
     Dates: start: 202002
  14. HEMEIXIN [Suspect]
     Active Substance: TOPOTECAN HYDROCHLORIDE
     Indication: NEUROBLASTOMA
  15. ONDANSETRON HYDROCHLORIDE. [Suspect]
     Active Substance: ONDANSETRON HYDROCHLORIDE
     Indication: PROPHYLAXIS OF NAUSEA AND VOMITING
     Dosage: ONDANSETRON HYDROCHLORIDE + 0.9% SODIUM CHLORIDE (NS) 25 ML
     Route: 041
     Dates: start: 20200205, end: 20200209
  16. ONDANSETRON HYDROCHLORIDE. [Suspect]
     Active Substance: ONDANSETRON HYDROCHLORIDE
     Dosage: DOSE RE-INTRODUCED, ONDANSETRON HYDROCHLORIDE + 0.9% SODIUM CHLORIDE (NS)
     Route: 041
     Dates: start: 202002

REACTIONS (1)
  - Pancytopenia [Recovering/Resolving]

NARRATIVE: CASE EVENT DATE: 20200210
